FAERS Safety Report 5019212-1 (Version None)
Quarter: 2006Q2

REPORT INFORMATION
  Report Type: 
  Country: None (occurrence: None)
  Receive Date: 20060531
  Receipt Date: 20060515
  Transmission Date: 20061013
  Serious: Yes (Hospitalization)
  Sender: FDA-Public Use
  Company Number: DSA_28068_2006

PATIENT
  Age: 48 Year
  Sex: Female

DRUGS (3)
  1. LORAZEPAM [Suspect]
     Dosage: 1 MG Q DAY PO
     Route: 048
  2. PROMETHAZINE HCL [Suspect]
     Dosage: 100 MG Q DAY PO
     Route: 048
  3. JATROSOM [Suspect]
     Dosage: 1 TAB Q DAY PO
     Route: 048

REACTIONS (5)
  - BLOOD CREATINE PHOSPHOKINASE MM INCREASED [None]
  - FLUSHING [None]
  - PYREXIA [None]
  - SOMNOLENCE [None]
  - TREMOR [None]
